FAERS Safety Report 25408188 (Version 1)
Quarter: 2025Q2

REPORT INFORMATION
  Report Type: Spontaneous
  Country: FR (occurrence: FR)
  Receive Date: 20250606
  Receipt Date: 20250606
  Transmission Date: 20250716
  Serious: Yes (Hospitalization)
  Sender: BAUSCH AND LOMB
  Company Number: FR-BAUSCH-BL-2025-007096

PATIENT
  Age: 7 Year
  Sex: Male

DRUGS (3)
  1. TETRABENAZINE [Suspect]
     Active Substance: TETRABENAZINE
     Indication: Aromatic L-amino acid decarboxylase deficiency
     Route: 048
     Dates: start: 20231120, end: 20231121
  2. TETRABENAZINE [Suspect]
     Active Substance: TETRABENAZINE
     Route: 048
     Dates: start: 20231122, end: 20231126
  3. TETRABENAZINE [Suspect]
     Active Substance: TETRABENAZINE
     Route: 048
     Dates: start: 20231127, end: 20231128

REACTIONS (2)
  - Bradycardia [Recovered/Resolved]
  - Product use in unapproved indication [Unknown]

NARRATIVE: CASE EVENT DATE: 20231128
